FAERS Safety Report 19244077 (Version 3)
Quarter: 2021Q4

REPORT INFORMATION
  Report Type: Report from Study
  Country: BR (occurrence: BR)
  Receive Date: 20210512
  Receipt Date: 20211125
  Transmission Date: 20220303
  Serious: Yes (Other)
  Sender: FDA-Public Use
  Company Number: BR-ABBOTT-2021A-1334885

PATIENT
  Sex: Female
  Weight: 71 kg

DRUGS (7)
  1. SYNTHROID [Suspect]
     Active Substance: LEVOTHYROXINE SODIUM
     Indication: Hypothyroidism
     Dosage: IN THE MORNING, FASTING. HALF AN HOUR TO BEFORE EAT
     Route: 048
     Dates: start: 1997
  2. DIOVAN HCT [Concomitant]
     Active Substance: HYDROCHLOROTHIAZIDE\VALSARTAN
     Indication: Hypertension
     Dosage: RIGHT AFTER BREAKFAST, ONGOING; UNIT + DAILY DOSE: 1 TABLET; DIOVAN HCT 80MG + 12,5 MG
     Route: 048
     Dates: start: 199711
  3. DIOSMIN\HESPERIDIN [Concomitant]
     Active Substance: DIOSMIN\HESPERIDIN
     Indication: Cardiovascular disorder
     Dosage: 1 DRAGEE IN THE MORNING, DAFLON 1000 (DIOSMIN 900MG + MICRONIZED HESPERIDIN 100MG)
     Route: 048
     Dates: start: 2010
  4. COVID-19 VACCINE [Concomitant]
     Indication: COVID-19 immunisation
     Dosage: SHE REPORTS THAT SHE TOOK THE SECOND DOSE OF COVID VACCINE.
  5. DIPYRONE [Concomitant]
     Active Substance: DIPYRONE
     Indication: Product used for unknown indication
  6. METOCLOPRAMIDE [Concomitant]
     Active Substance: METOCLOPRAMIDE
     Indication: Product used for unknown indication
  7. PROSSO D+ [Concomitant]
     Indication: Product used for unknown indication

REACTIONS (10)
  - Arrhythmia [Unknown]
  - Hiatus hernia [Unknown]
  - Thrombosis [Recovering/Resolving]
  - Intestinal perforation [Unknown]
  - Hernia repair [Unknown]
  - Urticaria chronic [Unknown]
  - Blood pressure inadequately controlled [Recovered/Resolved]
  - Arthralgia [Recovered/Resolved]
  - Haematoma [Unknown]
  - Fall [Unknown]

NARRATIVE: CASE EVENT DATE: 19990101
